FAERS Safety Report 10339637 (Version 1)
Quarter: 2014Q3

REPORT INFORMATION
  Report Type: Report from Study
  Country: US (occurrence: US)
  Receive Date: 20140724
  Receipt Date: 20140724
  Transmission Date: 20150326
  Serious: Yes (Other)
  Sender: FDA-Public Use
  Company Number: US-ASTRAZENECA-2014SE51798

PATIENT
  Age: 78 Year
  Sex: Male
  Weight: 81.6 kg

DRUGS (2)
  1. CRESTOR [Suspect]
     Active Substance: ROSUVASTATIN CALCIUM
     Indication: BLOOD CHOLESTEROL INCREASED
     Route: 048
  2. OTHERS-UNSPECIFIED [Concomitant]
     Dosage: UNKNOWN UNK

REACTIONS (2)
  - Pain in extremity [Unknown]
  - Bladder cancer [Unknown]

NARRATIVE: CASE EVENT DATE: 200701
